FAERS Safety Report 24409196 (Version 2)
Quarter: 2025Q1

REPORT INFORMATION
  Report Type: Spontaneous
  Country: US (occurrence: US)
  Receive Date: 20241008
  Receipt Date: 20250303
  Transmission Date: 20250409
  Serious: Yes (Hospitalization, Other)
  Sender: NOVO NORDISK
  Company Number: US-NOVOPROD-1291994

PATIENT
  Age: 51 Year
  Sex: Female
  Weight: 117.4 kg

DRUGS (52)
  1. OZEMPIC [Suspect]
     Active Substance: SEMAGLUTIDE
     Indication: Type 2 diabetes mellitus
     Dosage: 0.25 MG, QW
     Dates: start: 20210519, end: 20210615
  2. OZEMPIC [Suspect]
     Active Substance: SEMAGLUTIDE
     Indication: Obesity
     Dosage: 0.50 MG, QW
     Dates: start: 20210615, end: 20220424
  3. OZEMPIC [Suspect]
     Active Substance: SEMAGLUTIDE
     Indication: Type 2 diabetes mellitus
     Dosage: 1 MG, QW
     Dates: start: 20220424, end: 20220927
  4. OZEMPIC [Suspect]
     Active Substance: SEMAGLUTIDE
     Indication: Obesity
  5. OZEMPIC [Suspect]
     Active Substance: SEMAGLUTIDE
     Indication: Obesity
  6. OZEMPIC [Suspect]
     Active Substance: SEMAGLUTIDE
     Indication: Type 2 diabetes mellitus
     Dosage: 2 MG, QW
     Dates: start: 20220927, end: 20230928
  7. JARDIANCE [Concomitant]
     Active Substance: EMPAGLIFLOZIN
     Indication: Type 2 diabetes mellitus
     Dates: start: 20210601
  8. INSULIN NOS [Concomitant]
     Active Substance: INSULIN NOS
     Indication: Type 2 diabetes mellitus
     Dates: start: 20220227, end: 20220407
  9. KLONOPIN [Concomitant]
     Active Substance: CLONAZEPAM
     Indication: Anxiety
  10. KLONOPIN [Concomitant]
     Active Substance: CLONAZEPAM
     Indication: Post-traumatic stress disorder
     Dates: start: 20100101
  11. PROAIR HFA [Concomitant]
     Active Substance: ALBUTEROL SULFATE
     Indication: Asthma
     Dates: start: 20190521
  12. SUMATRIPTAN [Concomitant]
     Active Substance: SUMATRIPTAN
     Indication: Migraine
     Route: 048
     Dates: start: 20190916
  13. AMITRIPTYLINE PAMOATE [Concomitant]
     Active Substance: AMITRIPTYLINE PAMOATE
     Indication: Anxiety
     Route: 048
     Dates: start: 20200910, end: 20230803
  14. LIPITOR [Concomitant]
     Active Substance: ATORVASTATIN CALCIUM
     Indication: Blood cholesterol increased
     Dates: start: 20201016, end: 20240930
  15. VISTARIL [Concomitant]
     Active Substance: HYDROXYZINE PAMOATE
     Indication: Anxiety
     Dates: start: 20210420, end: 20230124
  16. NEORAL [Concomitant]
     Active Substance: CYCLOSPORINE
     Indication: Psoriasis
     Dates: start: 20210427, end: 20211017
  17. NEORAL [Concomitant]
     Active Substance: CYCLOSPORINE
     Indication: Rheumatoid arthritis
  18. BETAMETHASONE DIPROPIONATE [Concomitant]
     Active Substance: BETAMETHASONE DIPROPIONATE
     Indication: Psoriasis
     Dates: start: 20210427
  19. OMEPRAZOLE [Concomitant]
     Active Substance: OMEPRAZOLE
     Indication: Gastrooesophageal reflux disease
     Dates: start: 20210917, end: 20211001
  20. OMEPRAZOLE [Concomitant]
     Active Substance: OMEPRAZOLE
     Indication: Abdominal discomfort
  21. EPINEPHRINE [Concomitant]
     Active Substance: EPINEPHRINE
     Indication: Anaphylactic reaction
     Dates: start: 20211008, end: 20240223
  22. TALTZ [Concomitant]
     Active Substance: IXEKIZUMAB
     Indication: Psoriasis
     Route: 058
     Dates: start: 20211104
  23. DIAZEPAM [Concomitant]
     Active Substance: DIAZEPAM
     Indication: Anxiety
     Dates: start: 20211203, end: 20211205
  24. PHENYLEPHRINE [Concomitant]
     Active Substance: PHENYLEPHRINE
     Indication: Colostomy closure
     Dates: start: 20220227, end: 20220528
  25. NORCO [Concomitant]
     Active Substance: ACETAMINOPHEN\HYDROCODONE BITARTRATE
     Indication: Colostomy closure
     Dates: start: 20220227, end: 20220302
  26. HUMALOG [Concomitant]
     Active Substance: INSULIN LISPRO
     Indication: Colostomy closure
     Dates: start: 20220227, end: 20220407
  27. ROBAXIN [Concomitant]
     Active Substance: METHOCARBAMOL
     Indication: Post procedural complication
     Dates: start: 20220315, end: 20220325
  28. ROBAXIN [Concomitant]
     Active Substance: METHOCARBAMOL
     Indication: Colostomy closure
     Dates: start: 20220227, end: 20220315
  29. ROBAXIN [Concomitant]
     Active Substance: METHOCARBAMOL
     Dates: start: 20230117, end: 20230214
  30. DEXTROSE [Concomitant]
     Active Substance: DEXTROSE MONOHYDRATE
     Indication: Colostomy closure
     Dates: start: 20220227, end: 20220528
  31. SENOKOT [Concomitant]
     Active Substance: SENNOSIDES
     Indication: Colostomy closure
     Dates: start: 20220228, end: 20220330
  32. CLEARLAX [Concomitant]
     Active Substance: POLYETHYLENE GLYCOL 3350
     Indication: Haemorrhoids
     Dates: start: 20220228, end: 20220330
  33. HEMORRHOIDAL [PHENYLEPHRINE HYDROCHLORIDE] [Concomitant]
     Indication: Haemorrhoids
     Dates: start: 20220228, end: 20220320
  34. MIRALAX [Concomitant]
     Active Substance: POLYETHYLENE GLYCOL 3350
     Indication: Post procedural complication
     Dates: start: 20220315, end: 20220318
  35. MIRALAX [Concomitant]
     Active Substance: POLYETHYLENE GLYCOL 3350
     Indication: Colostomy closure
     Dates: start: 20220228, end: 20220407
  36. DOCUSATE [Concomitant]
     Active Substance: DOCUSATE
     Indication: Colostomy closure
     Dates: start: 20220228, end: 20220315
  37. MORNIFLUMATE [Concomitant]
     Active Substance: MORNIFLUMATE
     Indication: Colostomy closure
     Dates: start: 20220228, end: 20220407
  38. ROXICODONE [Concomitant]
     Active Substance: OXYCODONE HYDROCHLORIDE
     Indication: Procedural pain
     Dates: start: 20230104, end: 20230109
  39. ROXICODONE [Concomitant]
     Active Substance: OXYCODONE HYDROCHLORIDE
     Indication: Post procedural complication
     Dates: start: 20220315, end: 20220325
  40. TYLENOL [Concomitant]
     Active Substance: ACETAMINOPHEN
     Indication: Post procedural complication
     Dates: start: 20220315, end: 20220325
  41. SIMETHICONE (DIMETHICONE) [Concomitant]
     Active Substance: DIMETHICONE
     Indication: Post procedural complication
     Dates: start: 20220316, end: 20220614
  42. ISOVUE 370 [Concomitant]
     Active Substance: IOPAMIDOL
     Indication: Procedural pain
     Dates: start: 20220523, end: 20220526
  43. MEDROL [Concomitant]
     Active Substance: METHYLPREDNISOLONE
     Indication: Arthralgia
     Dates: start: 20230718, end: 20230724
  44. COMPRO [Concomitant]
     Active Substance: PROCHLORPERAZINE
     Indication: Abdominal pain
     Dates: start: 20230918, end: 20230923
  45. COMPRO [Concomitant]
     Active Substance: PROCHLORPERAZINE
     Indication: Nausea
  46. COMPRO [Concomitant]
     Active Substance: PROCHLORPERAZINE
     Indication: Vomiting
  47. IBUPROFEN [Concomitant]
     Active Substance: IBUPROFEN
     Indication: Arthralgia
     Dates: start: 20190501
  48. RESTASIS [Concomitant]
     Active Substance: CYCLOSPORINE
     Indication: Dry eye
     Dates: start: 20200608
  49. MULTIVITAMIN AND ELEMENTS TABLETS(23) [Concomitant]
     Indication: Vitamin supplementation
     Dates: start: 20210517, end: 20220201
  50. VITAMIN B12 [Concomitant]
     Active Substance: CYANOCOBALAMIN
     Indication: Hypovitaminosis
     Dates: start: 20220201
  51. LIDODERM [Concomitant]
     Active Substance: LIDOCAINE
     Indication: Colostomy closure
     Dates: start: 20220227, end: 20220315
  52. METFORMIN [Concomitant]
     Active Substance: METFORMIN HYDROCHLORIDE
     Indication: Type 2 diabetes mellitus
     Dates: start: 20200521, end: 20210601

REACTIONS (4)
  - Impaired gastric emptying [Recovered/Resolved]
  - Nausea [Recovered/Resolved]
  - Abdominal pain upper [Recovered/Resolved]
  - Vomiting [Recovered/Resolved]

NARRATIVE: CASE EVENT DATE: 20230915
